FAERS Safety Report 25952698 (Version 1)
Quarter: 2025Q4

REPORT INFORMATION
  Report Type: Report from Study
  Country: CA (occurrence: CA)
  Receive Date: 20251023
  Receipt Date: 20251023
  Transmission Date: 20260118
  Serious: Yes (Other)
  Sender: ALEXION PHARMACEUTICALS
  Company Number: CA-AstraZeneca-CH-00933534A

PATIENT
  Sex: Female

DRUGS (3)
  1. CAPIVASERTIB [Suspect]
     Active Substance: CAPIVASERTIB
     Indication: Hormone receptor positive HER2 negative breast cancer
     Dosage: 320 MILLIGRAM, BID
     Dates: start: 20241120
  2. FASLODEX [Suspect]
     Active Substance: FULVESTRANT
     Indication: Hormone receptor positive HER2 negative breast cancer
     Dosage: UNK
  3. FASLODEX [Suspect]
     Active Substance: FULVESTRANT

REACTIONS (2)
  - Squamous cell carcinoma [Unknown]
  - Skin disorder [Unknown]
